FAERS Safety Report 17337134 (Version 1)
Quarter: 2020Q1

REPORT INFORMATION
  Report Type: Report from Study
  Country: IN (occurrence: IN)
  Receive Date: 20200129
  Receipt Date: 20200129
  Transmission Date: 20200409
  Serious: Yes (Death)
  Sender: FDA-Public Use
  Company Number: NVSC2020IN020662

PATIENT
  Age: 12 Year
  Sex: Female

DRUGS (1)
  1. REVOLADE [Suspect]
     Active Substance: ELTROMBOPAG
     Indication: APLASTIC ANAEMIA
     Dosage: 150 MG, QD, TABLET
     Route: 065
     Dates: start: 20191125, end: 20191224

REACTIONS (2)
  - Cardiac failure [Fatal]
  - Pyrexia [Fatal]

NARRATIVE: CASE EVENT DATE: 20191225
